FAERS Safety Report 5417517-3 (Version None)
Quarter: 2007Q3

REPORT INFORMATION
  Report Type: 
  Country: None (occurrence: None)
  Receive Date: 20070816
  Receipt Date: 20070615
  Transmission Date: 20080115
  Serious: Yes (Hospitalization)
  Sender: FDA-Public Use
  Company Number: ES-MERCK-0706USA03222

PATIENT
  Age: 11 Year
  Sex: Female
  Weight: 50 kg

DRUGS (6)
  1. ELSPAR [Suspect]
     Route: 051
  2. CANCIDAS [Concomitant]
     Route: 051
  3. CANCIDAS [Concomitant]
     Route: 051
  4. AMPHOTERICIN B [Concomitant]
     Route: 065
  5. AMPHOTERICIN B [Concomitant]
     Route: 065
  6. GRANULOCYTE COLONY STIMULATING FACTOR (UNSPECIFIED) [Concomitant]
     Indication: GRANULOCYTOPENIA
     Route: 065

REACTIONS (3)
  - DRUG EFFECT DECREASED [None]
  - PHLEBITIS [None]
  - PYREXIA [None]
